FAERS Safety Report 8186748-4 (Version None)
Quarter: 2012Q1

REPORT INFORMATION
  Report Type: 
  Country: None (occurrence: None)
  Receive Date: 20120306
  Receipt Date: 20120306
  Transmission Date: 20120608
  Serious: Yes (Other)
  Sender: FDA-Public Use
  Company Number: None

PATIENT
  Age: 48 Year
  Sex: Female
  Weight: 98.883 kg

DRUGS (1)
  1. METFORMIN HCL [Suspect]
     Indication: TYPE 2 DIABETES MELLITUS
     Dosage: TAKE 1 TABLET BY MOUTH
     Route: 048
     Dates: start: 20120207, end: 20120227

REACTIONS (4)
  - HEADACHE [None]
  - STRESS [None]
  - DIARRHOEA [None]
  - MEDICATION ERROR [None]
